FAERS Safety Report 8067000-4 (Version None)
Quarter: 2012Q1

REPORT INFORMATION
  Report Type: 
  Country: None (occurrence: None)
  Receive Date: 20120124
  Receipt Date: 20120116
  Transmission Date: 20120608
  Serious: Yes (Hospitalization)
  Sender: FDA-Public Use
  Company Number: FR-MERCK-1109FRA00071

PATIENT
  Sex: Female

DRUGS (3)
  1. METFORMIN HYDROCHLORIDE [Suspect]
     Route: 048
  2. JANUMET [Suspect]
     Route: 048
  3. JANUMET [Suspect]
     Route: 048

REACTIONS (3)
  - GASTROINTESTINAL DISORDER [None]
  - VOMITING [None]
  - OVERDOSE [None]
